FAERS Safety Report 23983073 (Version 1)
Quarter: 2024Q2

REPORT INFORMATION
  Report Type: Spontaneous
  Country: US (occurrence: US)
  Receive Date: 20240617
  Receipt Date: 20240617
  Transmission Date: 20240715
  Serious: No
  Sender: FDA-Public Use
  Company Number: US-BRISTOL-MYERS SQUIBB COMPANY-2024-096348

PATIENT
  Age: 67 Year
  Sex: Female
  Weight: 61.23 kg

DRUGS (1)
  1. LENALIDOMIDE [Suspect]
     Active Substance: LENALIDOMIDE
     Indication: Plasma cell myeloma in remission
     Route: 048
     Dates: start: 20230825, end: 20240530

REACTIONS (5)
  - Gamma-glutamyltransferase increased [Unknown]
  - Arthritis [Unknown]
  - White blood cell count decreased [Unknown]
  - Light chain analysis increased [Unknown]
  - Off label use [Unknown]
